FAERS Safety Report 10385835 (Version 2)
Quarter: 2014Q3

REPORT INFORMATION
  Report Type: Spontaneous
  Country: US (occurrence: US)
  Receive Date: 20140814
  Receipt Date: 20140924
  Transmission Date: 20150326
  Serious: Yes (Other)
  Sender: FDA-Public Use
  Company Number: US-ALLERGAN-1417599US

PATIENT
  Age: 86 Year
  Sex: Female

DRUGS (1)
  1. RESTASIS [Suspect]
     Active Substance: CYCLOSPORINE
     Indication: PRODUCT USED FOR UNKNOWN INDICATION
     Dosage: 2 GTT, BID
     Route: 047
     Dates: start: 2013

REACTIONS (4)
  - Balance disorder [Unknown]
  - Head injury [Unknown]
  - Fall [Unknown]
  - Joint dislocation [Unknown]

NARRATIVE: CASE EVENT DATE: 20140729
